FAERS Safety Report 13693854 (Version 2)
Quarter: 2017Q2

REPORT INFORMATION
  Report Type: Spontaneous
  Country: CH (occurrence: CH)
  Receive Date: 20170627
  Receipt Date: 20170628
  Transmission Date: 20170830
  Serious: Yes (Hospitalization)
  Sender: FDA-Public Use
  Company Number: CH-JNJFOC-20170618776

PATIENT
  Age: 24 Year
  Sex: Female

DRUGS (4)
  1. RISPERDAL [Suspect]
     Active Substance: RISPERIDONE
     Indication: BIPOLAR DISORDER
     Route: 048
     Dates: start: 201702
  2. RISPERDAL [Suspect]
     Active Substance: RISPERIDONE
     Indication: BIPOLAR DISORDER
     Route: 048
     Dates: start: 201603, end: 201612
  3. RISPERDAL [Suspect]
     Active Substance: RISPERIDONE
     Indication: PANIC ATTACK
     Route: 048
     Dates: start: 201702
  4. RISPERDAL [Suspect]
     Active Substance: RISPERIDONE
     Indication: PANIC ATTACK
     Route: 048
     Dates: start: 201603, end: 201612

REACTIONS (3)
  - Overdose [Recovered/Resolved]
  - Musculoskeletal stiffness [Recovered/Resolved]
  - Tongue movement disturbance [Recovered/Resolved]

NARRATIVE: CASE EVENT DATE: 20170430
